FAERS Safety Report 7902234-8 (Version None)
Quarter: 2011Q4

REPORT INFORMATION
  Report Type: 
  Country: None (occurrence: None)
  Receive Date: 20111108
  Receipt Date: 20111027
  Transmission Date: 20120403
  Serious: Yes (Other)
  Sender: FDA-Public Use
  Company Number: US-JNJFOC-20111012216

PATIENT
  Sex: Female
  Weight: 79.38 kg

DRUGS (2)
  1. REMICADE [Suspect]
     Indication: CROHN'S DISEASE
     Route: 042
     Dates: start: 20070101
  2. FLU [Suspect]
     Indication: PRODUCT USED FOR UNKNOWN INDICATION
     Dates: start: 20110918

REACTIONS (11)
  - DEHYDRATION [None]
  - VITAMIN D DEFICIENCY [None]
  - HEPATIC ENZYME INCREASED [None]
  - KIDNEY INFECTION [None]
  - BLOOD CHOLESTEROL INCREASED [None]
  - CARDIAC FAILURE CONGESTIVE [None]
  - BLOOD POTASSIUM DECREASED [None]
  - ABNORMAL LOSS OF WEIGHT [None]
  - GLUCOSE TOLERANCE IMPAIRED [None]
  - BLOOD CALCIUM DECREASED [None]
  - WHITE BLOOD CELL COUNT INCREASED [None]
